FAERS Safety Report 14356489 (Version 19)
Quarter: 2018Q3

REPORT INFORMATION
  Report Type: Report from Study
  Country: US (occurrence: US)
  Receive Date: 20180105
  Receipt Date: 20180905
  Transmission Date: 20181010
  Serious: Yes (Hospitalization)
  Sender: FDA-Public Use
  Company Number: US-ACTELION-A-NJ2018-165265

PATIENT
  Age: 60 Year
  Sex: Female
  Weight: 77.98 kg

DRUGS (21)
  1. ALLOPURINOL. [Concomitant]
     Active Substance: ALLOPURINOL
     Dosage: 10 MG, QD
     Dates: start: 20170131
  2. KCL [Concomitant]
     Active Substance: POTASSIUM CHLORIDE
     Dosage: 20 MG, QD
     Dates: start: 20110311
  3. VELETRI [Suspect]
     Active Substance: EPOPROSTENOL
     Dosage: 4 NG/KG, PER MIN
     Route: 042
     Dates: start: 201712
  4. UPTRAVI [Suspect]
     Active Substance: SELEXIPAG
     Indication: PULMONARY ARTERIAL HYPERTENSION
     Dosage: 600 MCG, BID
     Route: 048
  5. UPTRAVI [Suspect]
     Active Substance: SELEXIPAG
     Dosage: 1600 MCG, BID
     Route: 048
  6. GABAPENTIN. [Concomitant]
     Active Substance: GABAPENTIN
     Dosage: 30 MG, TID
     Dates: start: 201004
  7. SYMBICORT [Concomitant]
     Active Substance: BUDESONIDE\FORMOTEROL FUMARATE DIHYDRATE
     Dosage: 2 PUFF, BID
     Dates: start: 20170131
  8. VELETRI [Suspect]
     Active Substance: EPOPROSTENOL
     Dosage: 6 NG/KG, PER MIN
     Route: 042
  9. PANTOPRAZOLE [Concomitant]
     Active Substance: PANTOPRAZOLE
     Dosage: 7 MG, QD
     Dates: start: 20170131
  10. VELETRI [Suspect]
     Active Substance: EPOPROSTENOL
     Dosage: 23 NG/KG, PER MIN
     Route: 042
  11. VELETRI [Suspect]
     Active Substance: EPOPROSTENOL
     Indication: PULMONARY ARTERIAL HYPERTENSION
     Dosage: 27 NG/KG, PER MIN
     Route: 042
  12. FUROSEMIDE. [Concomitant]
     Active Substance: FUROSEMIDE
     Dosage: 8 MG, TID
     Dates: start: 201004
  13. ALBUTEROL. [Concomitant]
     Active Substance: ALBUTEROL
     Dosage: 1 (ILLEGIBLE), PRN
     Dates: start: 20180211
  14. UPTRAVI [Suspect]
     Active Substance: SELEXIPAG
     Dosage: 1400 MCG, BID
     Route: 048
  15. MELOXICAM. [Concomitant]
     Active Substance: MELOXICAM
     Dosage: 15 MG, QPM
     Dates: start: 20170131
  16. DILTIAZEM. [Concomitant]
     Active Substance: DILTIAZEM
  17. ELIQUIS [Concomitant]
     Active Substance: APIXABAN
  18. ROSUVASTATIN. [Concomitant]
     Active Substance: ROSUVASTATIN
     Dosage: 2 MG, QD
     Dates: start: 20000603
  19. VALSARTAN. [Concomitant]
     Active Substance: VALSARTAN
     Dosage: 20 MG, QD
     Dates: start: 20170320
  20. VITAMIN B12 [Concomitant]
     Active Substance: CYANOCOBALAMIN
     Dosage: UNK, QD
  21. ASA [Concomitant]
     Active Substance: ASPIRIN
     Dosage: 81 MG, QD
     Dates: start: 20170131

REACTIONS (24)
  - Gastroenteritis viral [Unknown]
  - Infection [Unknown]
  - Gout [Unknown]
  - Food poisoning [Unknown]
  - Oxygen saturation decreased [Unknown]
  - Diarrhoea [Unknown]
  - Interstitial lung disease [Unknown]
  - Condition aggravated [Unknown]
  - Pain in jaw [Unknown]
  - Vomiting [Unknown]
  - Fluid overload [Unknown]
  - Nausea [Unknown]
  - Dizziness [Unknown]
  - Dyspnoea [Unknown]
  - Abdominal pain [Unknown]
  - Hypotension [Unknown]
  - Dyspnoea at rest [Unknown]
  - Gastrointestinal haemorrhage [Unknown]
  - Fatigue [Unknown]
  - Respiratory failure [Unknown]
  - Respiratory distress [Unknown]
  - Pneumonia [Unknown]
  - Unevaluable event [Unknown]
  - Oedema [Unknown]

NARRATIVE: CASE EVENT DATE: 20180221
